FAERS Safety Report 4913300-3 (Version None)
Quarter: 2006Q1

REPORT INFORMATION
  Report Type: 
  Country: None (occurrence: None)
  Receive Date: 20060210
  Receipt Date: 20050325
  Transmission Date: 20060701
  Serious: Yes (Other)
  Sender: FDA-Public Use
  Company Number: 800327

PATIENT
  Age: 57 Year
  Sex: Female
  Weight: 75.5 kg

DRUGS (21)
  1. EXTRANEAL [Suspect]
     Indication: PERITONEAL DIALYSIS
     Dosage: 1000 ML EVERY DAY IP ; 1500 ML EVERY DAY IP
     Route: 033
     Dates: start: 20031009, end: 20031013
  2. EXTRANEAL [Suspect]
     Indication: RENAL FAILURE CHRONIC
     Dosage: 1000 ML EVERY DAY IP ; 1500 ML EVERY DAY IP
     Route: 033
     Dates: start: 20031009, end: 20031013
  3. EXTRANEAL [Suspect]
     Indication: PERITONEAL DIALYSIS
     Dosage: 1000 ML EVERY DAY IP ; 1500 ML EVERY DAY IP
     Route: 033
     Dates: start: 20031014
  4. EXTRANEAL [Suspect]
     Indication: RENAL FAILURE CHRONIC
     Dosage: 1000 ML EVERY DAY IP ; 1500 ML EVERY DAY IP
     Route: 033
     Dates: start: 20031014
  5. DIANEAL PD-2 2.5 [Concomitant]
  6. TAKEPRON [Concomitant]
  7. TRYPTANOL [Concomitant]
  8. AROPHALM [Concomitant]
  9. ALFAROL [Concomitant]
  10. CLARITIN [Concomitant]
  11. MUCOSTA [Concomitant]
  12. PROVERA [Concomitant]
  13. VERAPAMIL [Concomitant]
  14. ASPIRIN [Concomitant]
  15. LOXONIN [Concomitant]
  16. RENAGEL [Concomitant]
  17. HORNEL [Concomitant]
  18. ARTIST [Concomitant]
  19. CARDENALIN [Concomitant]
  20. NORVASC [Concomitant]
  21. DIOVAN [Concomitant]

REACTIONS (3)
  - ANAEMIA [None]
  - HAEMODIALYSIS [None]
  - PULMONARY OEDEMA [None]
